FAERS Safety Report 11446496 (Version 1)
Quarter: 2015Q3

REPORT INFORMATION
  Report Type: Spontaneous
  Country: US (occurrence: US)
  Receive Date: 20150831
  Receipt Date: 20150831
  Transmission Date: 20151125
  Serious: Yes (Hospitalization)
  Sender: FDA-Public Use
  Company Number: US-ELI_LILLY_AND_COMPANY-US200901002454

PATIENT
  Age: 19 Year
  Sex: Male

DRUGS (14)
  1. AMANTADINE [Concomitant]
     Active Substance: AMANTADINE
  2. BACLOFEN. [Concomitant]
     Active Substance: BACLOFEN
  3. ZANAFLEX [Concomitant]
     Active Substance: TIZANIDINE HYDROCHLORIDE
  4. ATIVAN [Concomitant]
     Active Substance: LORAZEPAM
     Indication: SEIZURE
  5. DOCUSATE [Concomitant]
     Active Substance: DOCUSATE
  6. LOVENOX [Concomitant]
     Active Substance: ENOXAPARIN SODIUM
  7. RITALIN [Concomitant]
     Active Substance: METHYLPHENIDATE HYDROCHLORIDE
  8. ARICEPT [Concomitant]
     Active Substance: DONEPEZIL HYDROCHLORIDE
  9. KEPPRA [Concomitant]
     Active Substance: LEVETIRACETAM
     Indication: SEIZURE
  10. BROMOCRIPTINE [Concomitant]
     Active Substance: BROMOCRIPTINE
  11. CYMBALTA [Suspect]
     Active Substance: DULOXETINE HYDROCHLORIDE
     Dosage: 60 MG, UNK
  12. CYMBALTA [Suspect]
     Active Substance: DULOXETINE HYDROCHLORIDE
     Dosage: 30 MG, UNK
  13. PEPCID [Concomitant]
     Active Substance: FAMOTIDINE
     Dosage: 1 D/F, 2/D
  14. MIRALAX [Concomitant]
     Active Substance: POLYETHYLENE GLYCOL 3350

REACTIONS (2)
  - Seizure [Unknown]
  - Constipation [Unknown]

NARRATIVE: CASE EVENT DATE: 20090109
